FAERS Safety Report 11626712 (Version 1)
Quarter: 2015Q4

REPORT INFORMATION
  Report Type: Spontaneous
  Country: GB (occurrence: GB)
  Receive Date: 20151013
  Receipt Date: 20151013
  Transmission Date: 20160304
  Serious: Yes (Disabling, Other)
  Sender: FDA-Public Use
  Company Number: GB-PFIZER INC-2015335270

PATIENT
  Age: 43 Year
  Sex: Female
  Weight: 60.32 kg

DRUGS (4)
  1. CHAMPIX [Suspect]
     Active Substance: VARENICLINE TARTRATE
     Indication: SMOKING CESSATION THERAPY
     Route: 048
  2. AMITRIPTYLINE [Concomitant]
     Active Substance: AMITRIPTYLINE
  3. CODEINE PHOSPHATE [Concomitant]
     Active Substance: CODEINE PHOSPHATE
  4. PARACETAMOL [Concomitant]
     Active Substance: ACETAMINOPHEN

REACTIONS (9)
  - Dry eye [Unknown]
  - Crying [Unknown]
  - Fatigue [Unknown]
  - Insomnia [Unknown]
  - Constipation [Unknown]
  - Activities of daily living impaired [Unknown]
  - Muscular weakness [Unknown]
  - Depression [Unknown]
  - Abdominal pain upper [Unknown]
